FAERS Safety Report 7596037-4 (Version None)
Quarter: 2011Q3

REPORT INFORMATION
  Report Type: 
  Country: None (occurrence: None)
  Receive Date: 20110707
  Receipt Date: 20110628
  Transmission Date: 20111222
  Serious: Yes (Hospitalization, Other)
  Sender: FDA-Public Use
  Company Number: PHHY2011US57647

PATIENT
  Sex: Female

DRUGS (10)
  1. ALPRAZOLAM [Concomitant]
     Dosage: 5 MG, UNK
  2. ASPIRIN [Concomitant]
     Dosage: 81 MG, UNK
  3. BENAZEPRIL HYDROCHLORIDE [Suspect]
     Dosage: 40 MG, BID
  4. DOC-Q-LACE [Concomitant]
     Dosage: 100 MG, PRN
  5. METOPROLOL TARTRATE [Concomitant]
     Dosage: 25 MG, UNK
  6. KLOR-CON [Concomitant]
     Dosage: 10 MEQ, UNK
  7. VICODIN [Concomitant]
     Dosage: 1 DF, UNK
  8. HYDROCHLOROTHIAZIDE [Concomitant]
     Dosage: 25 MG, UNK
  9. CRESTOR [Concomitant]
     Dosage: 10 MG, UNK
  10. DIPHENOXYLATE [Concomitant]
     Dosage: UNK, EVERY 4 HOURS WHEN NECESSARY

REACTIONS (4)
  - BLOOD PRESSURE INCREASED [None]
  - ABDOMINAL DISCOMFORT [None]
  - HEART RATE INCREASED [None]
  - DYSPNOEA [None]
